FAERS Safety Report 19879501 (Version 1)
Quarter: 2021Q3

REPORT INFORMATION
  Report Type: Spontaneous
  Country: US (occurrence: US)
  Receive Date: 20210924
  Receipt Date: 20210924
  Transmission Date: 20211014
  Serious: Yes (Other)
  Sender: FDA-Public Use
  Company Number: None

PATIENT
  Age: 78 Year
  Sex: Male
  Weight: 65.25 kg

DRUGS (2)
  1. ATENOLOL. [Concomitant]
     Active Substance: ATENOLOL
  2. LOSARTAN 100 MG TAB [Suspect]
     Active Substance: LOSARTAN
     Indication: BLOOD PRESSURE INCREASED
     Dosage: QUANTITY:1 TABLET(S);?
     Route: 048
     Dates: start: 20210701, end: 20210922

REACTIONS (9)
  - Myalgia [None]
  - Decreased appetite [None]
  - Libido increased [None]
  - Anosmia [None]
  - Feeling cold [None]
  - Ageusia [None]
  - Asthenia [None]
  - Pyrexia [None]
  - Bedridden [None]

NARRATIVE: CASE EVENT DATE: 20210921
